FAERS Safety Report 9037872 (Version 1)
Quarter: 2013Q1

REPORT INFORMATION
  Report Type: Spontaneous
  Country: US (occurrence: US)
  Receive Date: 20130129
  Receipt Date: 20130129
  Transmission Date: 20140127
  Serious: No
  Sender: FDA-Public Use
  Company Number: US-MYLANLABS-2012S1016890

PATIENT
  Sex: Male

DRUGS (8)
  1. HYDROCHLOROTHIAZIDE CAPSULES [Suspect]
     Indication: OEDEMA PERIPHERAL
     Route: 048
     Dates: start: 20120811, end: 20120812
  2. HYDROCHLOROTHIAZIDE CAPSULES [Suspect]
     Indication: OEDEMA PERIPHERAL
     Route: 048
     Dates: start: 20120811, end: 20120812
  3. NABUMETONE [Suspect]
     Indication: PAIN
     Route: 048
  4. DIOVAN [Suspect]
     Indication: BLOOD PRESSURE INCREASED
     Dosage: 160MG/25MG
     Route: 048
  5. LASIX [Suspect]
     Indication: SWELLING
     Route: 048
  6. FLUTICASONE [Suspect]
     Indication: SINUS OPERATION
     Route: 045
     Dates: start: 201205
  7. CLONAZEPAM [Concomitant]
     Indication: PAIN
     Route: 048
  8. METOPROLOL [Concomitant]
     Indication: ARRHYTHMIA
     Route: 048

REACTIONS (3)
  - Headache [Recovered/Resolved]
  - Myalgia [Recovered/Resolved]
  - Skin burning sensation [Recovered/Resolved]
